FAERS Safety Report 19026156 (Version 1)
Quarter: 2021Q1

REPORT INFORMATION
  Report Type: Report from Study
  Country: US (occurrence: US)
  Receive Date: 20210318
  Receipt Date: 20210318
  Transmission Date: 20210420
  Serious: Yes (Hospitalization)
  Sender: FDA-Public Use
  Company Number: US-TAKEDA-US202028882

PATIENT
  Age: 50 Year
  Sex: Male

DRUGS (12)
  1. TEDUGLUTIDE [Suspect]
     Active Substance: TEDUGLUTIDE
     Indication: SHORT-BOWEL SYNDROME
     Dosage: 4 MILLIGRAM, QD
     Route: 058
     Dates: start: 20200811
  2. TEDUGLUTIDE [Suspect]
     Active Substance: TEDUGLUTIDE
     Indication: CROHN^S DISEASE
     Dosage: 4 MILLIGRAM, QD
     Route: 058
     Dates: start: 20200812
  3. TEDUGLUTIDE [Suspect]
     Active Substance: TEDUGLUTIDE
     Dosage: 4 MILLIGRAM, QD
     Route: 058
     Dates: start: 202008
  4. TEDUGLUTIDE [Suspect]
     Active Substance: TEDUGLUTIDE
     Indication: SHORT-BOWEL SYNDROME
     Dosage: 4 MILLIGRAM, QD
     Route: 058
     Dates: start: 20200811
  5. TEDUGLUTIDE [Suspect]
     Active Substance: TEDUGLUTIDE
     Indication: CROHN^S DISEASE
     Dosage: 4 MILLIGRAM, QD
     Route: 058
     Dates: start: 20200812
  6. TEDUGLUTIDE [Suspect]
     Active Substance: TEDUGLUTIDE
     Dosage: 4 MILLIGRAM, QD
     Route: 058
     Dates: start: 202008
  7. TEDUGLUTIDE [Suspect]
     Active Substance: TEDUGLUTIDE
     Dosage: 4 MILLIGRAM, QD
     Route: 058
     Dates: start: 202008
  8. TEDUGLUTIDE [Suspect]
     Active Substance: TEDUGLUTIDE
     Indication: SHORT-BOWEL SYNDROME
     Dosage: 4 MILLIGRAM, QD
     Route: 058
     Dates: start: 20200811
  9. TEDUGLUTIDE [Suspect]
     Active Substance: TEDUGLUTIDE
     Dosage: 4 MILLIGRAM, QD
     Route: 058
     Dates: start: 202008
  10. TEDUGLUTIDE [Suspect]
     Active Substance: TEDUGLUTIDE
     Indication: SHORT-BOWEL SYNDROME
     Dosage: 4 MILLIGRAM, QD
     Route: 058
     Dates: start: 20200811
  11. TEDUGLUTIDE [Suspect]
     Active Substance: TEDUGLUTIDE
     Indication: CROHN^S DISEASE
     Dosage: 4 MILLIGRAM, QD
     Route: 058
     Dates: start: 20200812
  12. TEDUGLUTIDE [Suspect]
     Active Substance: TEDUGLUTIDE
     Indication: CROHN^S DISEASE
     Dosage: 4 MILLIGRAM, QD
     Route: 058
     Dates: start: 20200812

REACTIONS (9)
  - Enterostomy [Unknown]
  - Oral herpes [Unknown]
  - Abdominal pain upper [Unknown]
  - Stoma complication [Unknown]
  - Pain [Unknown]
  - Injection site bruising [Unknown]
  - Injection site reaction [Unknown]
  - Peripheral swelling [Unknown]
  - Headache [Unknown]

NARRATIVE: CASE EVENT DATE: 202008
